FAERS Safety Report 18418534 (Version 1)
Quarter: 2020Q4

REPORT INFORMATION
  Report Type: Spontaneous
  Country: BR (occurrence: BR)
  Receive Date: 20201023
  Receipt Date: 20201023
  Transmission Date: 20210114
  Serious: Yes (Other)
  Sender: FDA-Public Use
  Company Number: NVSC2020BR260127

PATIENT
  Age: 51 Year
  Sex: Female
  Weight: 65 kg

DRUGS (5)
  1. GLIVEC [Suspect]
     Active Substance: IMATINIB MESYLATE
     Indication: CHRONIC MYELOID LEUKAEMIA
     Dosage: 400 MG, QD
     Route: 048
     Dates: start: 20070621, end: 20090901
  2. TASIGNA [Suspect]
     Active Substance: NILOTINIB
     Indication: PRODUCT USED FOR UNKNOWN INDICATION
     Dosage: 400 MG, BID
     Route: 065
  3. GLIVEC [Suspect]
     Active Substance: IMATINIB MESYLATE
     Dosage: 400 MG, QD
     Route: 065
     Dates: start: 200709, end: 200710
  4. GLIVEC [Suspect]
     Active Substance: IMATINIB MESYLATE
     Dosage: 300 MG, QD
     Route: 065
     Dates: start: 200712, end: 200801
  5. GLIVEC [Suspect]
     Active Substance: IMATINIB MESYLATE
     Dosage: ALTERNATING DOSES FROM 300MG-400MG
     Route: 065
     Dates: start: 200802, end: 200909

REACTIONS (12)
  - Pruritus [Recovered/Resolved]
  - Tooth infection [Recovered/Resolved]
  - Folliculitis [Unknown]
  - Nausea [Recovered/Resolved]
  - Platelet count decreased [Unknown]
  - Leukopenia [Recovered/Resolved]
  - Cytokine abnormal [Unknown]
  - Erythema multiforme [Unknown]
  - Anaemia [Unknown]
  - Thrombocytopenia [Recovered/Resolved]
  - Muscle spasms [Recovered/Resolved]
  - White blood cell count decreased [Unknown]

NARRATIVE: CASE EVENT DATE: 20070622
